FAERS Safety Report 12376072 (Version 1)
Quarter: 2016Q2

REPORT INFORMATION
  Report Type: Spontaneous
  Country: FR (occurrence: FR)
  Receive Date: 20160517
  Receipt Date: 20160517
  Transmission Date: 20160815
  Serious: Yes (Other)
  Sender: FDA-Public Use
  Company Number: FR-MDT-ADR-2016-00110

PATIENT
  Age: 46 Year
  Sex: Male

DRUGS (1)
  1. LIORESAL [Suspect]
     Active Substance: BACLOFEN
     Route: 037

REACTIONS (5)
  - Muscle spasticity [Unknown]
  - Bacterial test positive [Unknown]
  - Pain [Unknown]
  - Sepsis [Unknown]
  - Implant site extravasation [Unknown]
